FAERS Safety Report 5106978-5 (Version None)
Quarter: 2006Q3

REPORT INFORMATION
  Report Type: 
  Country: None (occurrence: None)
  Receive Date: 20060913
  Receipt Date: 20060901
  Transmission Date: 20061208
  Serious: Yes (Hospitalization)
  Sender: FDA-Public Use
  Company Number: 220002M06GBR

PATIENT
  Age: 9 Year
  Sex: Female
  Weight: 21.9 kg

DRUGS (1)
  1. SAIZEN [Suspect]
     Indication: GROWTH HORMONE DEFICIENCY
     Dosage: 0.6 MG, 1 IN 1 DAYS
     Dates: start: 20060612, end: 20060821

REACTIONS (2)
  - FALL [None]
  - HEADACHE [None]
